FAERS Safety Report 24740884 (Version 1)
Quarter: 2024Q4

REPORT INFORMATION
  Report Type: Spontaneous
  Country: GB (occurrence: GB)
  Receive Date: 20241217
  Receipt Date: 20241217
  Transmission Date: 20250115
  Serious: Yes (Hospitalization, Disabling, Other)
  Sender: TEVA
  Company Number: None

PATIENT
  Sex: Female

DRUGS (4)
  1. LEVOTHYROXINE [Suspect]
     Active Substance: LEVOTHYROXINE
     Indication: Product used for unknown indication
     Route: 065
  2. OMEPRAZOLE [Concomitant]
     Active Substance: OMEPRAZOLE
     Indication: Product used for unknown indication
  3. POLYETHYLENE GLYCOLS [Concomitant]
     Active Substance: POLYETHYLENE GLYCOLS
     Indication: Product used for unknown indication
  4. UNSPECIFIED INGREDIENT [Concomitant]
     Active Substance: UNSPECIFIED INGREDIENT
     Indication: Product used for unknown indication

REACTIONS (6)
  - Gastritis [Not Recovered/Not Resolved]
  - Food allergy [Not Recovered/Not Resolved]
  - Lactose intolerance [Unknown]
  - Gastric ulcer [Not Recovered/Not Resolved]
  - Helicobacter gastritis [Unknown]
  - Gastritis bacterial [Not Recovered/Not Resolved]

NARRATIVE: CASE EVENT DATE: 20080506
